FAERS Safety Report 5694126-2 (Version None)
Quarter: 2008Q2

REPORT INFORMATION
  Report Type: 
  Country: None (occurrence: None)
  Receive Date: 20080402
  Receipt Date: 20080323
  Transmission Date: 20081010
  Serious: Yes (Other)
  Sender: FDA-Public Use
  Company Number: 2008007715

PATIENT
  Age: 18 Month
  Sex: Male

DRUGS (1)
  1. ZYRTEC [Suspect]
     Dosage: ORAL
     Route: 048

REACTIONS (6)
  - CRYING [None]
  - INSOMNIA [None]
  - PRURITUS [None]
  - RASH GENERALISED [None]
  - SCRATCH [None]
  - SKIN HAEMORRHAGE [None]
